FAERS Safety Report 4555948-4 (Version None)
Quarter: 2005Q1

REPORT INFORMATION
  Report Type: 
  Country: None (occurrence: None)
  Receive Date: 20050112
  Receipt Date: 20040910
  Transmission Date: 20050727
  Serious: Yes (Other)
  Sender: FDA-Public Use
  Company Number: 380096

PATIENT
  Age: 64 Year
  Sex: Female
  Weight: 57.4 kg

DRUGS (2)
  1. VESANOID [Suspect]
     Indication: ACUTE MYELOID LEUKAEMIA
     Dosage: 10 MG   7 PER DAY      ORAL
     Route: 048
     Dates: start: 20040702
  2. ZYRTEC-D 12 HOUR [Suspect]
     Dosage: 1 DOSE FORM DAILY     ORAL
     Route: 048

REACTIONS (1)
  - HYPERTRIGLYCERIDAEMIA [None]
